FAERS Safety Report 4844444-2 (Version None)
Quarter: 2005Q4

REPORT INFORMATION
  Report Type: 
  Country: None (occurrence: None)
  Receive Date: 20051202
  Receipt Date: 20050718
  Transmission Date: 20060501
  Serious: Yes (Other)
  Sender: FDA-Public Use
  Company Number: US-MERCK-0507USA02280

PATIENT
  Age: 66 Year
  Sex: Male
  Weight: 95 kg

DRUGS (4)
  1. VIOXX [Suspect]
     Indication: NECK INJURY
     Route: 048
     Dates: start: 19990101, end: 20040101
  2. METHOCARBAMOL [Concomitant]
     Route: 065
  3. ROBAXIN [Concomitant]
     Route: 065
  4. DARVOCET-N 100 [Concomitant]
     Route: 065

REACTIONS (2)
  - CEREBROVASCULAR ACCIDENT [None]
  - EAR DISORDER [None]
